FAERS Safety Report 18476569 (Version 1)
Quarter: 2020Q4

REPORT INFORMATION
  Report Type: Spontaneous
  Country: FR (occurrence: FR)
  Receive Date: 20201107
  Receipt Date: 20201107
  Transmission Date: 20210114
  Serious: Yes (Hospitalization)
  Sender: FDA-Public Use
  Company Number: FR-ACCORD-207548

PATIENT
  Age: 23 Year
  Sex: Female

DRUGS (3)
  1. QUETIAPINE. [Suspect]
     Active Substance: QUETIAPINE
     Dosage: NP
     Route: 048
     Dates: start: 20200921, end: 20200921
  2. DIAZEPAM. [Suspect]
     Active Substance: DIAZEPAM
     Dosage: NP
     Route: 048
     Dates: start: 20200921, end: 20200921
  3. ZOPICLONE [Suspect]
     Active Substance: ZOPICLONE
     Dosage: NP
     Route: 048
     Dates: start: 20200921, end: 20200921

REACTIONS (5)
  - Miosis [Recovered/Resolved]
  - Intentional overdose [Unknown]
  - Poisoning deliberate [Recovered/Resolved]
  - Somnolence [Recovered/Resolved]
  - Dysarthria [Recovered/Resolved]

NARRATIVE: CASE EVENT DATE: 20200921
